FAERS Safety Report 7631976 (Version 3)
Quarter: 2013Q1

REPORT INFORMATION
  Report Type: Spontaneous
  Country: BR (occurrence: BR)
  Receive Date: 20101018
  Receipt Date: 20130111
  Transmission Date: 20140127
  Serious: Yes (Hospitalization, Other)
  Sender: FDA-Public Use
  Company Number: PHHY2010BR66988

PATIENT
  Sex: Female

DRUGS (5)
  1. DIOVAN AMLO FIX [Suspect]
     Indication: HYPERTENSION
     Dosage: 1 DF, (320 MG VALS/ 10 MG HYDRO) DAILY
     Route: 048
  2. AMIODARONE [Concomitant]
     Indication: TACHYCARDIA
     Dosage: 40 OR 80 MG
  3. CILOSTAZOL [Concomitant]
     Indication: ANGIOPATHY
     Dosage: 1 DF, UNK
  4. HYDROCHLOROTHIAZIDE [Concomitant]
     Indication: BLOOD PRESSURE ABNORMAL
     Dosage: 1 DF, UNK
  5. SINVASTATINA [Concomitant]
     Indication: BLOOD CHOLESTEROL INCREASED
     Dosage: 1 DF, UNK

REACTIONS (5)
  - Angiopathy [Unknown]
  - Limb discomfort [Unknown]
  - Local swelling [Unknown]
  - Scar [Unknown]
  - Haemoglobin decreased [Unknown]
